FAERS Safety Report 6688262-1 (Version None)
Quarter: 2010Q2

REPORT INFORMATION
  Report Type: 
  Country: None (occurrence: None)
  Receive Date: 20100420
  Receipt Date: 20100416
  Transmission Date: 20101027
  Serious: Yes (Hospitalization)
  Sender: FDA-Public Use
  Company Number: FR-ROCHE-597821

PATIENT
  Sex: Male

DRUGS (10)
  1. TOCILIZUMAB [Suspect]
     Indication: RHEUMATOID ARTHRITIS
     Dosage: LAST DOSE PRIOR TO SAE BECAME SERIOUS: 17 OCTOBER 2008. DOSAGE FORM: INFUSION. STRENGTH PER PROTOCOL
     Route: 042
     Dates: start: 20060310
  2. TOCILIZUMAB [Suspect]
     Dosage: PARTICIPATED IN STUDY WA18063.
     Route: 042
  3. PARACETAMOL [Concomitant]
     Dosage: TDD REPORTED: 500 MG PRN.
  4. DAFALGAN CODEINE [Concomitant]
  5. FOLIC ACID [Concomitant]
     Dosage: TDD: 10 MG/ WEEK.
  6. METHOTREXATE [Concomitant]
     Dosage: TDD: 10MG/ WEEK.
     Dates: start: 20071106, end: 20081107
  7. RIMEXOLONE [Concomitant]
     Dosage: TDD: 2 DROPS /QIS.
     Dates: start: 20080501
  8. CARMELLOSE SODIUM [Concomitant]
     Dates: start: 20080501
  9. KETOPROFEN GEL [Concomitant]
     Dosage: TDD: 2.5% PRN.
     Dates: start: 20080111
  10. MELOXICAM [Concomitant]
     Dosage: TDD: 15 MG PRN.
     Dates: start: 20080901

REACTIONS (1)
  - ERYSIPELAS [None]
